FAERS Safety Report 22158248 (Version 4)
Quarter: 2024Q1

REPORT INFORMATION
  Report Type: Report from Study
  Country: US (occurrence: US)
  Receive Date: 20230331
  Receipt Date: 20240202
  Transmission Date: 20240410
  Serious: Yes (Hospitalization)
  Sender: FDA-Public Use
  Company Number: US-ACADIA PHARMACEUTICALS INC.-ACA-2023-PIM-000951

PATIENT
  Sex: Female

DRUGS (3)
  1. NUPLAZID [Suspect]
     Active Substance: PIMAVANSERIN TARTRATE
     Indication: Parkinson^s disease psychosis
     Dosage: 34 MILLIGRAM, QD
     Route: 048
     Dates: start: 20220816
  2. NUPLAZID [Suspect]
     Active Substance: PIMAVANSERIN TARTRATE
     Dosage: 34 MILLIGRAM, QD
     Route: 048
  3. GLUCOSAMINE + CHONDORITIN [Concomitant]
     Dosage: 500-400

REACTIONS (5)
  - Tremor [Unknown]
  - Peripheral swelling [Recovered/Resolved]
  - Product dose omission issue [Recovered/Resolved]
  - Gait disturbance [Unknown]
  - Confusional state [Not Recovered/Not Resolved]
